FAERS Safety Report 8245854-6 (Version None)
Quarter: 2012Q1

REPORT INFORMATION
  Report Type: 
  Country: None (occurrence: None)
  Receive Date: 20120330
  Receipt Date: 20120316
  Transmission Date: 20120608
  Serious: Yes (Hospitalization)
  Sender: FDA-Public Use
  Company Number: AU-RANBAXY-2012RR-53739

PATIENT
  Age: 52 Year
  Sex: Female

DRUGS (24)
  1. PAROXETINE [Suspect]
     Indication: MENTAL DISORDER
     Dosage: UNK
     Route: 065
  2. PAROXETINE [Suspect]
     Dosage: 60 MG, UNK
  3. CITALOPRAM HYDROBROMIDE [Suspect]
     Indication: MENTAL DISORDER
     Dosage: 60 MG, UNK
     Route: 065
  4. PREMARIN [Suspect]
     Indication: MENOPAUSE
     Dosage: 0.625 MG
     Route: 065
  5. SIMVASTATIN [Suspect]
     Indication: PRODUCT USED FOR UNKNOWN INDICATION
     Dosage: UNK
     Route: 065
  6. PAROXETINE [Suspect]
  7. DIAZEPAM [Suspect]
     Indication: MENTAL DISORDER
     Dosage: 5 MG
     Route: 065
  8. TRAMADOL HCL [Suspect]
     Indication: PAIN
     Dosage: UNK
     Route: 065
  9. ERYTHROMYCIN [Suspect]
     Indication: PRODUCT USED FOR UNKNOWN INDICATION
     Route: 065
  10. LEVOTHYROXINE SODIUM [Suspect]
     Indication: PRODUCT USED FOR UNKNOWN INDICATION
     Dosage: 100 MG, UNK
     Route: 065
  11. FLUOXETINE [Suspect]
     Indication: MENTAL DISORDER
     Dosage: UNK
     Route: 065
  12. CELECOXIB [Suspect]
     Indication: PAIN
     Dosage: 200 MG, PRN
     Route: 065
  13. LOVASTATIN [Suspect]
     Indication: PRODUCT USED FOR UNKNOWN INDICATION
     Route: 065
  14. TENORMIN [Suspect]
     Indication: PRODUCT USED FOR UNKNOWN INDICATION
     Dosage: 12.5 MG, UNK
     Route: 065
  15. FLUTICASONE PROPIONATE/SALMETEROL [Suspect]
     Indication: PRODUCT USED FOR UNKNOWN INDICATION
     Route: 065
  16. CEPHALEXIN [Suspect]
     Indication: PRODUCT USED FOR UNKNOWN INDICATION
     Route: 065
  17. PAROXETINE [Suspect]
     Indication: STRESS AT WORK
  18. METOCLOPRAMIDE [Suspect]
     Indication: PRODUCT USED FOR UNKNOWN INDICATION
     Dosage: UNK
     Route: 065
  19. VENLAFAXINE [Suspect]
     Indication: MENTAL DISORDER
     Dosage: 300 MG/DAY
     Route: 065
  20. PRAVASTATIN [Suspect]
     Indication: PRODUCT USED FOR UNKNOWN INDICATION
     Dosage: 40 MG, UNK
     Route: 065
  21. IRBESARTAN [Suspect]
     Indication: HYPERTENSION
     Dosage: 300 MG/DAY
     Route: 065
  22. ATORVASTATIN [Suspect]
     Indication: BLOOD CHOLESTEROL INCREASED
     Dosage: UNK
     Route: 065
  23. VALACYCLOVIR [Suspect]
     Indication: HERPES ZOSTER
     Route: 065
  24. PENICILLIN [Suspect]
     Indication: PRODUCT USED FOR UNKNOWN INDICATION
     Route: 065

REACTIONS (4)
  - PHYSICAL ASSAULT [None]
  - DRUG INTERACTION [None]
  - SUICIDE ATTEMPT [None]
  - AKATHISIA [None]
